FAERS Safety Report 26124877 (Version 1)
Quarter: 2025Q4

REPORT INFORMATION
  Report Type: Spontaneous
  Country: US (occurrence: US)
  Receive Date: 20251205
  Receipt Date: 20251205
  Transmission Date: 20260118
  Serious: Yes (Other)
  Sender: SANOFI AVENTIS
  Company Number: US-SA-2025SA359527

PATIENT
  Sex: Male

DRUGS (1)
  1. RASBURICASE [Suspect]
     Active Substance: RASBURICASE
     Indication: Product used for unknown indication
     Dosage: UNK

REACTIONS (1)
  - Haemolytic anaemia [Unknown]
